FAERS Safety Report 15780628 (Version 3)
Quarter: 2025Q3

REPORT INFORMATION
  Report Type: Spontaneous
  Country: EU (occurrence: EU)
  Receive Date: 20190102
  Receipt Date: 20250716
  Transmission Date: 20251021
  Serious: Yes (Life-Threatening, Other)
  Sender: AUROBINDO
  Company Number: EU-MLMSERVICE-20181212-1526661-1

PATIENT
  Age: 42 Year
  Sex: Male

DRUGS (8)
  1. OXALIPLATIN [Suspect]
     Active Substance: OXALIPLATIN
     Indication: Rectal adenocarcinoma
     Route: 042
     Dates: start: 201309
  2. OXALIPLATIN [Suspect]
     Active Substance: OXALIPLATIN
     Route: 042
  3. FLUOROURACIL [Suspect]
     Active Substance: FLUOROURACIL
     Indication: Rectal adenocarcinoma
     Route: 042
     Dates: start: 201309
  4. FLUOROURACIL [Suspect]
     Active Substance: FLUOROURACIL
     Route: 042
  5. LEUCOVORIN [Suspect]
     Active Substance: LEUCOVORIN\LEUCOVORIN CALCIUM
     Indication: Rectal adenocarcinoma
     Route: 042
     Dates: start: 201309
  6. LEUCOVORIN [Suspect]
     Active Substance: LEUCOVORIN\LEUCOVORIN CALCIUM
     Route: 042
  7. SALINE [Concomitant]
     Active Substance: SODIUM CHLORIDE
     Indication: Product used for unknown indication
     Dosage: 1000 U BERINERT INHIBITOR C1 IN 100 ML SALINE SOLUTION I.V. EVERY WEEK THROUGHOUT TREATMENT
     Route: 042
  8. Berinertp c1 [Concomitant]
     Indication: Premedication
     Dosage: 1000 U BERINERT INHIBITOR C1 IN 100 ML SALINE SOLUTION I.V. EVERY WEEK THROUGHOUT TREATMENT
     Route: 042

REACTIONS (6)
  - Hereditary angioedema [Recovered/Resolved]
  - Thrombocytopenia [Unknown]
  - Haematotoxicity [Unknown]
  - Neutropenia [Unknown]
  - Neuropathy peripheral [Unknown]
  - Condition aggravated [Recovered/Resolved]

NARRATIVE: CASE EVENT DATE: 20130101
